FAERS Safety Report 12910904 (Version 2)
Quarter: 2017Q1

REPORT INFORMATION
  Report Type: Spontaneous
  Country: US (occurrence: US)
  Receive Date: 20161104
  Receipt Date: 20170303
  Transmission Date: 20170428
  Serious: Yes (Hospitalization)
  Sender: FDA-Public Use
  Company Number: US-JNJFOC-20161016382

PATIENT
  Age: 88 Year
  Sex: Female

DRUGS (3)
  1. AGGRENOX [Suspect]
     Active Substance: ASPIRIN\DIPYRIDAMOLE
     Indication: PRODUCT USED FOR UNKNOWN INDICATION
     Dosage: 25 MG/200 MG TWICE A DAY PER ORAL
     Route: 048
     Dates: end: 201411
  2. XARELTO [Suspect]
     Active Substance: RIVAROXABAN
     Indication: DEEP VEIN THROMBOSIS
     Dosage: 15 MG TABLET BY MOUTH TWICE A DAY FOR 21 DAYS FOLLOWED BY 20 MG DAILY
     Route: 048
     Dates: start: 20141027, end: 20141123
  3. XARELTO [Suspect]
     Active Substance: RIVAROXABAN
     Indication: PULMONARY EMBOLISM
     Dosage: 15 MG TABLET BY MOUTH TWICE A DAY FOR 21 DAYS FOLLOWED BY 20 MG DAILY
     Route: 048
     Dates: start: 20141027, end: 20141123

REACTIONS (2)
  - Blood urine present [Unknown]
  - Gastrointestinal haemorrhage [Recovered/Resolved]

NARRATIVE: CASE EVENT DATE: 201411
